FAERS Safety Report 5401141-2 (Version None)
Quarter: 2007Q3

REPORT INFORMATION
  Report Type: 
  Country: None (occurrence: None)
  Receive Date: 20070731
  Receipt Date: 20070719
  Transmission Date: 20080115
  Serious: Yes (Other)
  Sender: FDA-Public Use
  Company Number: US-TYCO HEALTHCARE/MALLINCKRODT-T200700629

PATIENT

DRUGS (9)
  1. ULTRA-TECHNEKOW DTE GENERATOR [Suspect]
     Indication: RADIOISOTOPE SCAN
     Dosage: UNK, SINGLE
     Route: 042
     Dates: start: 20070227, end: 20070227
  2. FISH OIL [Concomitant]
     Indication: SUPPLEMENTATION THERAPY
     Dosage: UNK, QD
     Route: 048
  3. PLAVIX [Concomitant]
     Indication: CARDIAC DISORDER
     Dosage: 70 MG, QD
     Route: 048
  4. BENICAR [Concomitant]
     Indication: HYPERTENSION
     Dosage: 20 MG, QD
     Route: 048
  5. METOPROLOL SUCCINATE [Concomitant]
     Indication: CARDIAC DISORDER
     Dosage: 50 MG, QD
     Route: 048
  6. SIMVASTATIN [Concomitant]
     Dosage: 40 MG, QD
     Route: 048
  7. ISOSORB                            /00586302/ [Concomitant]
     Dosage: 60 MG, QD
     Route: 048
  8. MELOXICAM [Concomitant]
     Dosage: 7.5 MG, QD
     Route: 048
  9. ASPIRIN [Concomitant]
     Indication: ANTICOAGULANT THERAPY
     Dosage: 81 MG, QD
     Route: 048

REACTIONS (4)
  - HEAD DISCOMFORT [None]
  - HEADACHE [None]
  - PAIN [None]
  - PYREXIA [None]
